FAERS Safety Report 5501042-5 (Version None)
Quarter: 2007Q4

REPORT INFORMATION
  Report Type: 
  Country: None (occurrence: None)
  Receive Date: 20071029
  Receipt Date: 20050207
  Transmission Date: 20080405
  Serious: No
  Sender: FDA-Public Use
  Company Number: US-BAXTER-601827

PATIENT
  Age: 12 Year
  Sex: Male
  Weight: 34 kg

DRUGS (1)
  1. ADVATE [Suspect]
     Indication: FACTOR VIII DEFICIENCY
     Route: 042
     Dates: start: 20040301

REACTIONS (1)
  - FACTOR VIII INHIBITION [None]
